FAERS Safety Report 11112256 (Version 4)
Quarter: 2015Q3

REPORT INFORMATION
  Report Type: Spontaneous
  Country: US (occurrence: US)
  Receive Date: 20150514
  Receipt Date: 20150722
  Transmission Date: 20151125
  Serious: No
  Sender: FDA-Public Use
  Company Number: US-PFIZER INC-2015159276

PATIENT
  Age: 93 Year
  Sex: Male
  Weight: 82 kg

DRUGS (8)
  1. SUTENT [Suspect]
     Active Substance: SUNITINIB MALATE
     Dosage: 50 MG, DAILY
     Route: 048
     Dates: start: 20150313
  2. RANITIDINE HCL [Concomitant]
     Active Substance: RANITIDINE HYDROCHLORIDE
     Indication: DYSPEPSIA
     Dosage: 150 MG, 1X/DAY (1 TABLET AT BEDTIME)
  3. ONDANSETRON [Concomitant]
     Active Substance: ONDANSETRON
     Dosage: 8 MG, 1 TABLET DISPERSE 3 TIMES A DAY AS NEEDED
  4. SUTENT [Suspect]
     Active Substance: SUNITINIB MALATE
     Dosage: 25 MG, CYCLIC (TAKE ONE DAILY FOR 4 WEEKS .FOLLOWED BY A 2 WEEK BREAK)
     Route: 048
     Dates: start: 20150504
  5. RANITIDINE HCL [Concomitant]
     Active Substance: RANITIDINE HYDROCHLORIDE
     Dosage: 50 MG, DAILY
  6. ACCUPRIL [Concomitant]
     Active Substance: QUINAPRIL HYDROCHLORIDE
     Indication: HYPERTENSION
     Dosage: 40 MG, DAILY
  7. SUTENT [Suspect]
     Active Substance: SUNITINIB MALATE
     Indication: RENAL CANCER METASTATIC
     Dosage: 50 MG, DAILY
     Route: 048
     Dates: start: 20150313, end: 20150410
  8. AMLODIPINE BESYLATE. [Concomitant]
     Active Substance: AMLODIPINE BESYLATE
     Indication: HYPERTENSION
     Dosage: 10 MG, DAILY

REACTIONS (14)
  - Dyspepsia [Unknown]
  - Anorectal disorder [Recovering/Resolving]
  - Nasal discomfort [Recovering/Resolving]
  - Decreased appetite [Recovering/Resolving]
  - Stomatitis [Recovering/Resolving]
  - Painful defaecation [Recovering/Resolving]
  - Activities of daily living impaired [Unknown]
  - Rectal lesion [Recovering/Resolving]
  - Depressed mood [Unknown]
  - Odynophagia [Recovering/Resolving]
  - Weight decreased [Recovering/Resolving]
  - Pollakiuria [Unknown]
  - Gait disturbance [Unknown]
  - Fatigue [Recovering/Resolving]

NARRATIVE: CASE EVENT DATE: 2015
